FAERS Safety Report 10417161 (Version 1)
Quarter: 2014Q3

REPORT INFORMATION
  Report Type: Spontaneous
  Country: US (occurrence: US)
  Receive Date: 20140828
  Receipt Date: 20140828
  Transmission Date: 20150326
  Serious: No
  Sender: FDA-Public Use
  Company Number: US-ENDO PHARMACEUTICALS INC.-HYDR20140003

PATIENT
  Age: 15 Year
  Sex: Male
  Weight: 44.95 kg

DRUGS (2)
  1. HYDROCORTISONE TABLETS 5MG [Suspect]
     Active Substance: HYDROCORTISONE
     Indication: ADDISON^S DISEASE
     Route: 048
     Dates: start: 2013, end: 201310
  2. HYDROCORTISONE. [Concomitant]
     Active Substance: HYDROCORTISONE
     Indication: ADDISON^S DISEASE
     Route: 048
     Dates: end: 2013

REACTIONS (2)
  - Renin abnormal [Recovered/Resolved]
  - Blood corticotrophin abnormal [Recovered/Resolved]

NARRATIVE: CASE EVENT DATE: 20130916
